FAERS Safety Report 6267445-9 (Version None)
Quarter: 2009Q3

REPORT INFORMATION
  Report Type: 
  Country: None (occurrence: None)
  Receive Date: 20090714
  Receipt Date: 20090709
  Transmission Date: 20100115
  Serious: Yes (Hospitalization)
  Sender: FDA-Public Use
  Company Number: CO-WYE-H10089809

PATIENT
  Sex: Male
  Weight: 40 kg

DRUGS (6)
  1. TAZOCIN [Suspect]
     Indication: WOUND INFECTION
     Route: 042
     Dates: start: 20090706, end: 20090706
  2. TRAMADOL HCL [Concomitant]
     Indication: ANALGESIC THERAPY
     Dosage: 50 MG/0.8 CC
     Route: 042
     Dates: start: 20090703
  3. RIFAMPICIN [Concomitant]
     Indication: ANTIBIOTIC THERAPY
     Route: 048
     Dates: start: 20090623
  4. IBUPROFEN [Concomitant]
     Indication: ANALGESIC THERAPY
     Route: 048
     Dates: start: 20090625
  5. DIPIPANONE [Concomitant]
     Indication: ANALGESIC THERAPY
     Dosage: 30 MG/KG/DAY (0.6 CC EVERY 6 HOURS)
     Route: 042
     Dates: start: 20090622
  6. CLINDAMYCIN [Concomitant]
     Indication: ANTIBIOTIC THERAPY
     Route: 042
     Dates: start: 20090623

REACTIONS (4)
  - ANAPHYLACTIC REACTION [None]
  - EYELID OEDEMA [None]
  - PRURITUS [None]
  - WRONG TECHNIQUE IN DRUG USAGE PROCESS [None]
